FAERS Safety Report 25039671 (Version 4)
Quarter: 2025Q3

REPORT INFORMATION
  Report Type: Report from Study
  Country: US (occurrence: US)
  Receive Date: 20250305
  Receipt Date: 20250916
  Transmission Date: 20251021
  Serious: No
  Sender: SUNOVION
  Company Number: US-SMPA-2025SPA002381AA

PATIENT
  Age: 74 Year
  Sex: Male

DRUGS (8)
  1. ORGOVYX [Suspect]
     Active Substance: RELUGOLIX
     Indication: Prostate cancer
     Dosage: 360 MG, SINGLE
     Route: 048
     Dates: start: 20250201, end: 20250201
  2. ORGOVYX [Suspect]
     Active Substance: RELUGOLIX
     Dosage: 120 MG, QD
     Route: 048
     Dates: start: 20250202
  3. LEVOTHYROXINE SODIUM [Concomitant]
     Active Substance: LEVOTHYROXINE SODIUM
  4. ROSUVASTATIN CALCIUM [Concomitant]
     Active Substance: ROSUVASTATIN CALCIUM
  5. PUMPKIN SEED OIL [Concomitant]
     Active Substance: PUMPKIN SEED OIL
  6. CAPSICUM\HERBALS [Concomitant]
     Active Substance: CAPSICUM\HERBALS
  7. TADALAFIL [Concomitant]
     Active Substance: TADALAFIL
  8. NAPROXEN SODIUM [Concomitant]
     Active Substance: NAPROXEN SODIUM

REACTIONS (4)
  - Muscle spasms [Unknown]
  - Hypoaesthesia [Unknown]
  - Fatigue [Unknown]
  - Therapy interrupted [Unknown]

NARRATIVE: CASE EVENT DATE: 20250904
